FAERS Safety Report 9394289 (Version 1)
Quarter: 2013Q3

REPORT INFORMATION
  Report Type: Report from Study
  Country: CN (occurrence: CN)
  Receive Date: 20130711
  Receipt Date: 20130711
  Transmission Date: 20140515
  Serious: Yes (Other)
  Sender: FDA-Public Use
  Company Number: CN-ROCHE-1247136

PATIENT
  Age: 57 Year
  Sex: Female

DRUGS (3)
  1. PEGASYS [Suspect]
     Indication: HEPATITIS C
     Route: 058
     Dates: start: 201203, end: 201212
  2. PEGASYS [Suspect]
     Route: 058
     Dates: start: 201303, end: 201307
  3. PEGASYS [Suspect]
     Route: 058
     Dates: start: 201307

REACTIONS (2)
  - Hepatitis C [Unknown]
  - Blood test abnormal [Unknown]
